FAERS Safety Report 22207767 (Version 3)
Quarter: 2024Q1

REPORT INFORMATION
  Report Type: Spontaneous
  Country: FR (occurrence: FR)
  Receive Date: 20230413
  Receipt Date: 20240215
  Transmission Date: 20240409
  Serious: Yes (Other)
  Sender: FDA-Public Use
  Company Number: None

PATIENT
  Age: 53 Year
  Sex: Male
  Weight: 102.5 kg

DRUGS (19)
  1. BESPONSA [Suspect]
     Active Substance: INOTUZUMAB OZOGAMICIN
     Indication: Acute lymphocytic leukaemia
     Dosage: 1.9 MG
     Route: 042
     Dates: start: 20221123, end: 20221123
  2. BESPONSA [Suspect]
     Active Substance: INOTUZUMAB OZOGAMICIN
     Dosage: 1.19 MG
     Route: 042
     Dates: start: 20221201, end: 20221201
  3. SCEMBLIX [Suspect]
     Active Substance: ASCIMINIB HYDROCHLORIDE
     Indication: Philadelphia positive acute lymphocytic leukaemia
     Dosage: 10 DF, 1X/DAY
     Route: 048
     Dates: start: 20221119, end: 20230207
  4. VALACYCLOVIR [Concomitant]
     Active Substance: VALACYCLOVIR HYDROCHLORIDE
     Indication: Opportunistic infection prophylaxis
     Dosage: 1 DF, 1X/DAY
     Route: 048
     Dates: start: 20221201
  5. ALFUZOSIN [Concomitant]
     Active Substance: ALFUZOSIN
     Indication: Urinary retention
     Dosage: 1 DF, 1X/DAY
     Route: 048
     Dates: start: 20221104, end: 20221203
  6. URSODIOL [Concomitant]
     Active Substance: URSODIOL
     Indication: Product used for unknown indication
     Dosage: 4 DF, 1X/DAY
     Route: 048
  7. CRESEMBA [Concomitant]
     Active Substance: ISAVUCONAZONIUM SULFATE
     Indication: Pyelonephritis
     Dosage: 3 DF, 1X/DAY
     Route: 042
     Dates: start: 20221130, end: 20221201
  8. CRESEMBA [Concomitant]
     Active Substance: ISAVUCONAZONIUM SULFATE
     Dosage: 1 DF, 1X/DAY
     Route: 042
     Dates: start: 20221202
  9. TRANEXAMIC ACID [Concomitant]
     Active Substance: TRANEXAMIC ACID
     Indication: Product used for unknown indication
     Dosage: 2 DF, 1X/DAY
     Route: 042
     Dates: start: 20221116, end: 20221221
  10. URAPIDIL HYDROCHLORIDE [Concomitant]
     Active Substance: URAPIDIL HYDROCHLORIDE
     Indication: Hypertension
     Dosage: 2 DF, 1X/DAY
     Route: 048
     Dates: start: 20221111
  11. PREGABALIN [Concomitant]
     Active Substance: PREGABALIN
     Indication: Neuralgia
     Dosage: 1 DF, 1X/DAY
     Route: 048
     Dates: start: 20221011, end: 20221221
  12. AMLODIPINE [Concomitant]
     Active Substance: AMLODIPINE BESYLATE
     Indication: Hypertension
     Dosage: 1 DF, 1X/DAY
     Route: 048
     Dates: start: 20221030
  13. BACTRIM [Concomitant]
     Active Substance: SULFAMETHOXAZOLE\TRIMETHOPRIM
     Indication: Opportunistic infection prophylaxis
     Dosage: 12 DF, 1X/DAY
     Route: 042
     Dates: start: 20221130, end: 20221221
  14. PHLOROGLUCINOL [Concomitant]
     Active Substance: PHLOROGLUCINOL
     Indication: Pain
     Dosage: 2 DF, 1X/DAY
     Route: 042
     Dates: start: 20221116, end: 20221221
  15. MEROPENEM [Concomitant]
     Active Substance: MEROPENEM
     Indication: Pyelonephritis
     Dosage: 6 DF, 1X/DAY
     Route: 042
     Dates: start: 20221120, end: 20221212
  16. ACUPAN [Concomitant]
     Active Substance: NEFOPAM HYDROCHLORIDE
     Indication: Pain
     Dosage: 120 MG, 1X/DAY
     Route: 042
  17. MAGNESIUM SULFATE [Concomitant]
     Active Substance: MAGNESIUM SULFATE\MAGNESIUM SULFATE HEPTAHYDRATE
     Indication: Mineral supplementation
     Dosage: 3 G, 1X/DAY
     Route: 042
     Dates: start: 20221102, end: 20221201
  18. LINEZOLID [Concomitant]
     Active Substance: LINEZOLID
     Indication: Pyelonephritis
     Dosage: 1200 MG, 1X/DAY
     Route: 042
     Dates: start: 20221122, end: 20221212
  19. FENOFIBRATE ARROW [Concomitant]
     Indication: Dyslipidaemia
     Dosage: 1 DF, 1X/DAY
     Route: 048

REACTIONS (3)
  - Acute kidney injury [Recovered/Resolved]
  - Obesity [Recovered/Resolved]
  - Condition aggravated [Recovered/Resolved]

NARRATIVE: CASE EVENT DATE: 20221129
